FAERS Safety Report 9397823 (Version 1)
Quarter: 2013Q3

REPORT INFORMATION
  Report Type: Spontaneous
  Country: US (occurrence: None)
  Receive Date: 20130711
  Receipt Date: 20130711
  Transmission Date: 20140515
  Serious: No
  Sender: FDA-Public Use
  Company Number: None

PATIENT
  Age: 43 Year
  Sex: Female

DRUGS (7)
  1. TUSSIN DM [Suspect]
     Indication: DIARRHOEA
     Dosage: 4 FLUID OUNCES BOTTLE
     Route: 048
     Dates: start: 20130516, end: 20130516
  2. TUSSIN DM [Suspect]
     Indication: BURNING SENSATION
     Dosage: 4 FLUID OUNCES BOTTLE
     Route: 048
     Dates: start: 20130516, end: 20130516
  3. TUSSIN DM [Suspect]
     Indication: NAUSEA
     Dosage: 4 FLUID OUNCES BOTTLE
     Route: 048
     Dates: start: 20130516, end: 20130516
  4. TUSSIN DM [Suspect]
     Indication: HYPOAESTHESIA
     Dosage: 4 FLUID OUNCES BOTTLE
     Route: 048
     Dates: start: 20130516, end: 20130516
  5. TUSSIN DM [Suspect]
     Indication: PRURITUS
     Dosage: 4 FLUID OUNCES BOTTLE
     Route: 048
     Dates: start: 20130516, end: 20130516
  6. TUSSIN DM [Suspect]
     Indication: ABDOMINAL PAIN
     Dosage: 4 FLUID OUNCES BOTTLE
     Route: 048
     Dates: start: 20130516, end: 20130516
  7. TUSSIN DM [Suspect]
     Dosage: 4 FLUID OUNCES BOTTLE
     Route: 048
     Dates: start: 20130516, end: 20130516

REACTIONS (17)
  - Headache [None]
  - Dizziness [None]
  - Dizziness [None]
  - Paraesthesia [None]
  - Pruritus [None]
  - Nausea [None]
  - Tremor [None]
  - Hyperhidrosis [None]
  - Cold sweat [None]
  - Diarrhoea [None]
  - Muscle spasms [None]
  - Pharyngeal hypoaesthesia [None]
  - Hypoaesthesia oral [None]
  - Hypoaesthesia oral [None]
  - Throat irritation [None]
  - Sensation of foreign body [None]
  - Product container seal issue [None]
